FAERS Safety Report 7035752-8 (Version None)
Quarter: 2010Q4

REPORT INFORMATION
  Report Type: 
  Country: None (occurrence: None)
  Receive Date: 20101008
  Receipt Date: 20101007
  Transmission Date: 20110411
  Serious: Yes (Other)
  Sender: FDA-Public Use
  Company Number: FR-BRISTOL-MYERS SQUIBB COMPANY-15270580

PATIENT
  Age: 45 Year
  Sex: Female
  Weight: 90 kg

DRUGS (2)
  1. ABILIFY [Suspect]
     Indication: DEPRESSION
     Dosage: STARTED AS 10MG AND DECREASED TO 5 MG ON 13NOV08 INTER ON DEC08 AND RESTARTED ON 2FED09 (5MG)
     Dates: start: 20080808
  2. EFFEXOR [Suspect]
     Indication: DEPRESSION
     Dosage: 2 CAPSULE/D
     Dates: start: 20080808

REACTIONS (1)
  - WEIGHT INCREASED [None]
